FAERS Safety Report 9888417 (Version 1)
Quarter: 2014Q1

REPORT INFORMATION
  Report Type: Spontaneous
  Country: US (occurrence: US)
  Receive Date: 20140211
  Receipt Date: 20140211
  Transmission Date: 20141002
  Serious: No
  Sender: FDA-Public Use
  Company Number: US-PFIZER INC-2014037375

PATIENT
  Age: 6 Year
  Sex: Male
  Weight: 19.27 kg

DRUGS (4)
  1. QUILLIVANT XR [Suspect]
     Indication: ATTENTION DEFICIT/HYPERACTIVITY DISORDER
     Dosage: 5 MG, DAILY
     Dates: start: 20140101, end: 20140102
  2. EPINEPHRINE [Concomitant]
     Indication: FOOD ALLERGY
     Dosage: UNK, AS NEEDED
  3. EPINEPHRINE [Concomitant]
     Indication: FOOD ALLERGY
  4. EPINEPHRINE [Concomitant]
     Indication: FOOD ALLERGY

REACTIONS (1)
  - Urticaria [Recovered/Resolved]
